FAERS Safety Report 26009704 (Version 1)
Quarter: 2025Q4

REPORT INFORMATION
  Report Type: Spontaneous
  Country: US (occurrence: US)
  Receive Date: 20251107
  Receipt Date: 20251107
  Transmission Date: 20260118
  Serious: No
  Sender: ELI LILLY AND COMPANY
  Company Number: US-ELI_LILLY_AND_COMPANY-US202510028364

PATIENT
  Age: 21 Year

DRUGS (1)
  1. ZEPBOUND [Suspect]
     Active Substance: TIRZEPATIDE
     Indication: Product used for unknown indication
     Dosage: 5 MG, UNKNOWN
     Route: 065

REACTIONS (6)
  - Headache [Unknown]
  - Presyncope [Unknown]
  - Tremor [Unknown]
  - Abdominal pain upper [Unknown]
  - Injection site rash [Unknown]
  - Vomiting [Unknown]
